FAERS Safety Report 6735383-0 (Version None)
Quarter: 2010Q2

REPORT INFORMATION
  Report Type: 
  Country: None (occurrence: None)
  Receive Date: 20100521
  Receipt Date: 20100512
  Transmission Date: 20101027
  Serious: Yes (Other)
  Sender: FDA-Public Use
  Company Number: CA-JNJFOC-20100505778

PATIENT
  Sex: Female
  Weight: 84.4 kg

DRUGS (8)
  1. REMICADE [Suspect]
     Indication: CROHN'S DISEASE
     Dosage: 6TH DOSE
     Route: 042
  2. REMICADE [Suspect]
     Route: 042
  3. SYNTHROID [Concomitant]
  4. IMURAN [Concomitant]
  5. CELEXA [Concomitant]
  6. NORTRIPTYLINE HCL [Concomitant]
  7. GABAPENTIN [Concomitant]
  8. QUETIAPINE [Concomitant]

REACTIONS (2)
  - HERPES ZOSTER [None]
  - MIGRAINE [None]
